FAERS Safety Report 8782814 (Version 1)
Quarter: 2012Q4

REPORT INFORMATION
  Report Type: 
  Country: US (occurrence: US)
  Receive Date: 20120913
  Receipt Date: 20120913
  Transmission Date: 20130627
  Serious: Yes (Death)
  Sender: FDA-Public Use
  Company Number: US-GLAXOSMITHKLINE-A0993139A

PATIENT
  Age: 58 Year
  Sex: Male

DRUGS (1)
  1. PROMACTA [Suspect]
     Indication: PLATELET COUNT DECREASED
     Dosage: 75MG Per day
     Route: 048
     Dates: start: 20120531, end: 20120901

REACTIONS (1)
  - Death [Fatal]
